FAERS Safety Report 4423335-5 (Version None)
Quarter: 2004Q3

REPORT INFORMATION
  Report Type: 
  Country: None (occurrence: None)
  Receive Date: 20040805
  Receipt Date: 20040727
  Transmission Date: 20050211
  Serious: Yes (Hospitalization)
  Sender: FDA-Public Use
  Company Number: USA-2004-0014884

PATIENT
  Age: 36 Year
  Sex: Male
  Weight: 113.4 kg

DRUGS (2)
  1. OXYCONTIN [Suspect]
     Indication: PAIN
     Dosage: 80 MG, Q8H  : 40 MG, BID
     Dates: start: 20030101, end: 20040401
  2. OXYCONTIN [Suspect]
     Indication: PAIN
     Dosage: 80 MG, Q8H  : 40 MG, BID
     Dates: start: 20040401

REACTIONS (5)
  - CELLULITIS [None]
  - CONFUSIONAL STATE [None]
  - LETHARGY [None]
  - OSTEOMYELITIS [None]
  - STAPHYLOCOCCAL INFECTION [None]
